FAERS Safety Report 17823730 (Version 4)
Quarter: 2020Q3

REPORT INFORMATION
  Report Type: Spontaneous
  Country: US (occurrence: US)
  Receive Date: 20200526
  Receipt Date: 20200911
  Transmission Date: 20201102
  Serious: No
  Sender: FDA-Public Use
  Company Number: US-PFIZER INC-2020206469

PATIENT
  Age: 59 Year
  Sex: Female

DRUGS (2)
  1. RASUVO [Concomitant]
     Active Substance: METHOTREXATE SODIUM
     Dosage: UNK
  2. XELJANZ [Suspect]
     Active Substance: TOFACITINIB CITRATE
     Indication: RHEUMATOID ARTHRITIS
     Dosage: 5 MG, 2X/DAY
     Route: 048
     Dates: start: 202004, end: 20200902

REACTIONS (10)
  - Dry skin [Unknown]
  - Hernia [Unknown]
  - Cough [Unknown]
  - Pollakiuria [Unknown]
  - Breast pain [Unknown]
  - Nocturia [Unknown]
  - Pain in extremity [Unknown]
  - Product dose omission issue [Unknown]
  - Insomnia [Unknown]
  - Arthropathy [Unknown]

NARRATIVE: CASE EVENT DATE: 2020
